FAERS Safety Report 5531582-4 (Version None)
Quarter: 2007Q4

REPORT INFORMATION
  Report Type: 
  Country: None (occurrence: None)
  Receive Date: 20071203
  Receipt Date: 20071123
  Transmission Date: 20080405
  Serious: Yes (Other)
  Sender: FDA-Public Use
  Company Number: PHBS2007BR19862

PATIENT
  Age: 21 Year
  Sex: Male

DRUGS (3)
  1. RITALIN [Suspect]
     Dosage: 14 DF, ONCE/SINGLE
     Route: 048
     Dates: start: 20071123
  2. BENZIDAMINE [Suspect]
     Dosage: 13 DF, ONCE/SINGLE
  3. COCAINE [Concomitant]

REACTIONS (3)
  - ANXIETY [None]
  - SUICIDE ATTEMPT [None]
  - TACHYCARDIA [None]
